FAERS Safety Report 4458403-5 (Version None)
Quarter: 2004Q3

REPORT INFORMATION
  Report Type: 
  Country: None (occurrence: None)
  Receive Date: 20040924
  Receipt Date: 20040916
  Transmission Date: 20050211
  Serious: Yes (Hospitalization)
  Sender: FDA-Public Use
  Company Number: AU-MERCK-0409AUS00070

PATIENT

DRUGS (9)
  1. FOSAMAX [Suspect]
     Indication: OSTEOPOROSIS
     Route: 048
  2. ALLOPURINOL [Concomitant]
     Route: 065
  3. ALLOPURINOL [Concomitant]
     Route: 065
  4. FUROSEMIDE [Concomitant]
     Route: 065
  5. METHYLDOPA [Concomitant]
     Indication: HYPERTENSION
     Route: 048
  6. OMEPRAZOLE MAGNESIUM [Concomitant]
     Route: 065
  7. QUINAPRIL HYDROCHLORIDE [Concomitant]
     Route: 065
  8. QUININE SULFATE [Concomitant]
     Route: 065
  9. ROFECOXIB [Concomitant]
     Route: 048

REACTIONS (1)
  - GASTRIC HAEMORRHAGE [None]
